FAERS Safety Report 7108375-X (Version None)
Quarter: 2010Q4

REPORT INFORMATION
  Report Type: 
  Country: None (occurrence: None)
  Receive Date: 20101117
  Receipt Date: 20101110
  Transmission Date: 20110411
  Serious: Yes (Hospitalization)
  Sender: FDA-Public Use
  Company Number: A0798489A

PATIENT
  Age: 57 Year
  Sex: Male
  Weight: 109.5 kg

DRUGS (8)
  1. AVANDIA [Suspect]
     Dosage: 4MG TWICE PER DAY
     Route: 048
     Dates: start: 20020101
  2. GLUCOPHAGE [Concomitant]
  3. CLONIDINE [Concomitant]
  4. MICRONASE [Concomitant]
  5. TENORMIN [Concomitant]
  6. TRIAMTERENE [Concomitant]
  7. ZOCOR [Concomitant]
  8. NORVASC [Concomitant]

REACTIONS (3)
  - CARDIAC FAILURE [None]
  - CEREBROVASCULAR ACCIDENT [None]
  - MYOCARDIAL INFARCTION [None]
